FAERS Safety Report 9275390 (Version 1)
Quarter: 2013Q2

REPORT INFORMATION
  Report Type: Spontaneous
  Country: US (occurrence: None)
  Receive Date: 20130501
  Receipt Date: 20130501
  Transmission Date: 20140414
  Serious: Yes (Life-Threatening, Hospitalization)
  Sender: FDA-Public Use
  Company Number: None

PATIENT
  Sex: Female
  Weight: 185.98 kg

DRUGS (2)
  1. LEXAPRO [Suspect]
     Indication: ANXIETY
  2. PREMPRO [Suspect]
     Dates: start: 199807, end: 19991203

REACTIONS (5)
  - Chest pain [None]
  - Anxiety [None]
  - Headache [None]
  - Insomnia [None]
  - Drug withdrawal syndrome [None]
